FAERS Safety Report 4999452-8 (Version None)
Quarter: 2006Q2

REPORT INFORMATION
  Report Type: 
  Country: None (occurrence: None)
  Receive Date: 20060509
  Receipt Date: 20060509
  Transmission Date: 20061013
  Serious: Yes (Life-Threatening, Hospitalization)
  Sender: FDA-Public Use
  Company Number: None

PATIENT
  Age: 42 Year
  Sex: Female
  Weight: 83 kg

DRUGS (12)
  1. HEPARIN [Suspect]
     Indication: PULMONARY EMBOLISM
     Dosage: 800 UNITS/HR IV
     Route: 042
     Dates: start: 20050923, end: 20050924
  2. RETEPLASE [Suspect]
     Indication: PULMONARY EMBOLISM
     Dosage: 30 UNITS X 2
     Dates: start: 20050923
  3. FENTANYL [Concomitant]
  4. LORAZEPAM [Concomitant]
  5. LANSOPRAZOLE [Concomitant]
  6. SOD. BICARB [Concomitant]
  7. ACETYLCYSTEINE [Concomitant]
  8. DIPHENHYDRAMINE HCL [Concomitant]
  9. APAP TAB [Concomitant]
  10. ZOSYN [Concomitant]
  11. PHENYLEPHRINE [Concomitant]
  12. VANCOMYCIN [Concomitant]

REACTIONS (5)
  - ACTIVATED PARTIAL THROMBOPLASTIN TIME PROLONGED [None]
  - CEREBRAL HAEMORRHAGE [None]
  - GENERAL PHYSICAL HEALTH DETERIORATION [None]
  - HAEMATOMA [None]
  - INJECTION SITE HAEMORRHAGE [None]
